FAERS Safety Report 25125578 (Version 1)
Quarter: 2025Q1

REPORT INFORMATION
  Report Type: Spontaneous
  Country: US (occurrence: US)
  Receive Date: 20250326
  Receipt Date: 20250326
  Transmission Date: 20250409
  Serious: Yes (Hospitalization, Other)
  Sender: ABBVIE
  Company Number: US-ABBVIE-6195327

PATIENT
  Age: 32 Year
  Sex: Male

DRUGS (20)
  1. DEPAKOTE [Suspect]
     Active Substance: DIVALPROEX SODIUM
     Indication: Product used for unknown indication
     Route: 048
  2. INGREZZA [Suspect]
     Active Substance: VALBENAZINE
     Indication: Dyskinesia
     Route: 048
     Dates: start: 2016
  3. INGREZZA [Suspect]
     Active Substance: VALBENAZINE
     Indication: Dyskinesia
     Dosage: USED FOR DRUG-INDUCED SUBACUTE DYSKINESIA
     Route: 048
     Dates: start: 20170509, end: 20171119
  4. INGREZZA [Suspect]
     Active Substance: VALBENAZINE
     Indication: Dyskinesia
     Dosage: USED FOR DRUG-INDUCED SUBACUTE DYSKINESIA
     Route: 048
     Dates: start: 20171120
  5. SODIUM CHLORIDE [Concomitant]
     Active Substance: SODIUM CHLORIDE
     Indication: Product used for unknown indication
  6. HYDROXYZINE [Concomitant]
     Active Substance: HYDROXYZINE HYDROCHLORIDE
     Indication: Product used for unknown indication
  7. BENZTROPINE [Concomitant]
     Active Substance: BENZTROPINE
     Indication: Product used for unknown indication
  8. ZYPREXA [Concomitant]
     Active Substance: OLANZAPINE
     Indication: Product used for unknown indication
  9. CLARITIN [Concomitant]
     Active Substance: LORATADINE
     Indication: Product used for unknown indication
  10. LEXAPRO [Concomitant]
     Active Substance: ESCITALOPRAM OXALATE
     Indication: Product used for unknown indication
  11. JARDIANCE [Concomitant]
     Active Substance: EMPAGLIFLOZIN
     Indication: Product used for unknown indication
  12. OMEPRAZOLE [Concomitant]
     Active Substance: OMEPRAZOLE
     Indication: Product used for unknown indication
  13. PANTOPRAZOLE [Concomitant]
     Active Substance: PANTOPRAZOLE
     Indication: Product used for unknown indication
  14. FLONASE [Concomitant]
     Active Substance: FLUTICASONE PROPIONATE
     Indication: Product used for unknown indication
  15. EXCEDRIN [Concomitant]
     Active Substance: ACETAMINOPHEN\ASPIRIN\CAFFEINE
     Indication: Product used for unknown indication
  16. DOCUSATE [Concomitant]
     Active Substance: DOCUSATE
     Indication: Product used for unknown indication
  17. CAPLYTA [Concomitant]
     Active Substance: LUMATEPERONE
     Indication: Product used for unknown indication
  18. LYBALVI [Concomitant]
     Active Substance: OLANZAPINE\SAMIDORPHAN L-MALATE
     Indication: Product used for unknown indication
  19. DUPIXENT [Concomitant]
     Active Substance: DUPILUMAB
     Indication: Product used for unknown indication
  20. PROPRANOLOL [Concomitant]
     Active Substance: PROPRANOLOL HYDROCHLORIDE
     Indication: Product used for unknown indication

REACTIONS (37)
  - Hospitalisation [Unknown]
  - Suicide attempt [Recovered/Resolved]
  - Self-destructive behaviour [Unknown]
  - Victim of sexual abuse [Unknown]
  - Thermal burn [Unknown]
  - Schizophrenia [Unknown]
  - Corneal abrasion [Unknown]
  - Hypersomnia [Recovered/Resolved]
  - Product dose omission issue [Unknown]
  - Coma [Unknown]
  - Tardive dyskinesia [Recovered/Resolved]
  - Weight decreased [Unknown]
  - Muscle atrophy [Unknown]
  - Gastrointestinal disorder [Unknown]
  - Hypotension [Unknown]
  - Overdose [Unknown]
  - Scoliosis [Unknown]
  - Intentional self-injury [Unknown]
  - Oesophageal ulcer [Unknown]
  - Oesophageal injury [Unknown]
  - Fractured coccyx [Unknown]
  - Gastrooesophageal reflux disease [Unknown]
  - Oesophageal haemorrhage [Unknown]
  - Gastric ulcer [Unknown]
  - Haematemesis [Unknown]
  - Adverse drug reaction [Unknown]
  - Pneumothorax [Unknown]
  - Acute oesophageal mucosal lesion [Unknown]
  - Allergic cough [Unknown]
  - Dehydration [Unknown]
  - Seasonal allergy [Unknown]
  - Exposure to fungus [Unknown]
  - Migraine [Unknown]
  - Hallucination [Unknown]
  - Auditory disorder [Unknown]
  - Upper limb fracture [Unknown]
  - Fall [Unknown]

NARRATIVE: CASE EVENT DATE: 20170801
